FAERS Safety Report 9053572 (Version 1)
Quarter: 2013Q1

REPORT INFORMATION
  Report Type: Spontaneous
  Country: US (occurrence: US)
  Receive Date: 20130208
  Receipt Date: 20130208
  Transmission Date: 20140127
  Serious: No
  Sender: FDA-Public Use
  Company Number: US-TARO-2012P1025236

PATIENT
  Age: 53 Year
  Sex: Female
  Weight: 50.8 kg

DRUGS (1)
  1. NYSTATIN + TRIAMCINOLONE ACETONIDE CREAM USP [Suspect]
     Indication: ACCIDENTAL EXPOSURE TO PRODUCT
     Dates: start: 20120429, end: 20120429

REACTIONS (6)
  - Application site dryness [Recovering/Resolving]
  - Application site exfoliation [Recovering/Resolving]
  - Urticaria [Recovering/Resolving]
  - Application site erythema [Recovering/Resolving]
  - Accidental exposure to product [Recovered/Resolved]
  - Hypersensitivity [Recovering/Resolving]
